FAERS Safety Report 4653266-7 (Version None)
Quarter: 2005Q2

REPORT INFORMATION
  Report Type: 
  Country: None (occurrence: None)
  Receive Date: 20050503
  Receipt Date: 20050418
  Transmission Date: 20051028
  Serious: Yes (Other)
  Sender: FDA-Public Use
  Company Number: 2005053831

PATIENT
  Age: 58 Year
  Sex: Male

DRUGS (2)
  1. NORVASC [Suspect]
     Indication: ILL-DEFINED DISORDER
     Dosage: 5 MG
     Dates: start: 20030801
  2. ZOPICLONE (ZOPICLONE) [Concomitant]

REACTIONS (1)
  - LYMPHOCYTE COUNT DECREASED [None]
